FAERS Safety Report 24450228 (Version 1)
Quarter: 2024Q4

REPORT INFORMATION
  Report Type: Spontaneous
  Country: UY (occurrence: UY)
  Receive Date: 20241017
  Receipt Date: 20241017
  Transmission Date: 20250115
  Serious: Yes (Other)
  Sender: JOHNSON AND JOHNSON
  Company Number: UY-BAYER-2024A146214

PATIENT
  Age: 60 Year
  Sex: Female

DRUGS (2)
  1. XARELTO [Suspect]
     Active Substance: RIVAROXABAN
     Indication: Atrial fibrillation
     Dosage: 20 MG, UNK
     Route: 048
  2. ASPIRIN [Suspect]
     Active Substance: ASPIRIN
     Indication: Transient ischaemic attack
     Dosage: UNK

REACTIONS (2)
  - Deep vein thrombosis [Recovering/Resolving]
  - Transient ischaemic attack [Unknown]
